FAERS Safety Report 5854953-5 (Version None)
Quarter: 2008Q3

REPORT INFORMATION
  Report Type: 
  Country: None (occurrence: None)
  Receive Date: 20080822
  Receipt Date: 20080409
  Transmission Date: 20090109
  Serious: No
  Sender: FDA-Public Use
  Company Number: US-ABBOTT-08P-163-0446308-00

PATIENT

DRUGS (2)
  1. SYNTHROID [Suspect]
     Indication: HORMONE REPLACEMENT THERAPY
  2. SYNTHROID [Suspect]

REACTIONS (1)
  - BLOOD THYROID STIMULATING HORMONE INCREASED [None]
